FAERS Safety Report 8193435-5 (Version None)
Quarter: 2012Q1

REPORT INFORMATION
  Report Type: 
  Country: None (occurrence: None)
  Receive Date: 20120308
  Receipt Date: 20120229
  Transmission Date: 20120608
  Serious: Yes (Other)
  Sender: FDA-Public Use
  Company Number: FR-TEVA-326252ISR

PATIENT
  Sex: Female

DRUGS (8)
  1. ACTIQ [Suspect]
     Indication: BACK PAIN
     Dosage: 3200 MICROGRAM; ADMIN ROUTE: TRANSMUCOSAL
  2. ACTIQ [Suspect]
     Dosage: 2400 MICROGRAM; ADMIN ROUTE: TRANSMUCOSAL
  3. ACTIQ [Suspect]
     Dosage: 1200 MICROGRAM; ADMIN ROUTE: TRANSMUCOSAL
  4. ACTIQ [Suspect]
     Dosage: 2400 MICROGRAM; ADMIN ROUTE: TRANSMUCOSAL
  5. ACTIQ [Suspect]
     Dosage: 1800 MICROGRAM; ADMIN ROUTE: TRANSMUCOSAL
  6. IMOVANE [Concomitant]
     Route: 048
  7. INTERFERON [Concomitant]
     Route: 048
  8. ACTIQ [Suspect]
     Dosage: 600 MICROGRAM; ADMIN ROUTE: TRANSMUCOSAL

REACTIONS (2)
  - DRUG DEPENDENCE [None]
  - OFF LABEL USE [None]
